FAERS Safety Report 12971676 (Version 1)
Quarter: 2016Q4

REPORT INFORMATION
  Report Type: Spontaneous
  Country: FR (occurrence: FR)
  Receive Date: 20161123
  Receipt Date: 20161123
  Transmission Date: 20170207
  Serious: Yes (Other)
  Sender: FDA-Public Use
  Company Number: FR-009507513-1611FRA009205

PATIENT
  Age: 2 Year
  Sex: Male
  Weight: 11 kg

DRUGS (1)
  1. CELESTENE [Suspect]
     Active Substance: BETAMETHASONE
     Dosage: 11 DF, QD
     Route: 048
     Dates: start: 20161007, end: 20161024

REACTIONS (3)
  - Swelling face [Recovering/Resolving]
  - Incorrect drug administration duration [Recovered/Resolved]
  - Medication error [Recovered/Resolved]

NARRATIVE: CASE EVENT DATE: 201610
